FAERS Safety Report 9995896 (Version 1)
Quarter: 2014Q1

REPORT INFORMATION
  Report Type: Spontaneous
  Country: US (occurrence: None)
  Receive Date: 20140310
  Receipt Date: 20140310
  Transmission Date: 20141002
  Serious: Yes (Disabling)
  Sender: FDA-Public Use
  Company Number: None

PATIENT
  Age: 37 Year
  Sex: Male
  Weight: 90.72 kg

DRUGS (1)
  1. PATANASE [Suspect]
     Indication: RHINITIS ALLERGIC
     Dosage: 2 SPRAYS PER NOSTRIL TWICE DAILY NASAL SPRAY
     Route: 045
     Dates: start: 20140303, end: 20140303

REACTIONS (13)
  - Head discomfort [None]
  - Headache [None]
  - Headache [None]
  - Paranasal sinus discomfort [None]
  - Rhinalgia [None]
  - Sinus headache [None]
  - Sinus headache [None]
  - Product quality issue [None]
  - Eye pain [None]
  - Abnormal sensation in eye [None]
  - Ocular discomfort [None]
  - Toothache [None]
  - Oral discomfort [None]
